FAERS Safety Report 10733081 (Version 1)
Quarter: 2015Q1

REPORT INFORMATION
  Report Type: Spontaneous
  Country: DE (occurrence: DE)
  Receive Date: 20150123
  Receipt Date: 20150123
  Transmission Date: 20150721
  Serious: Yes (Death, Congenital Anomaly, Other)
  Sender: FDA-Public Use
  Company Number: DE-PFIZER INC-2015027000

PATIENT
  Sex: Male

DRUGS (13)
  1. SERTRALINE HCL [Suspect]
     Active Substance: SERTRALINE HYDROCHLORIDE
     Indication: OBSESSIVE-COMPULSIVE DISORDER
     Dosage: 150 MG, 1X/DAY (0. - 32.3. GESTATIONAL WEEK)
     Route: 064
     Dates: start: 20130906, end: 20140421
  2. THYBON [Concomitant]
     Indication: AUTOIMMUNE THYROIDITIS
     Dosage: 10 ?G, 1X/DAY, 0. - 8.3. GESTATIONAL WEEK
     Route: 064
     Dates: start: 20130906, end: 20131104
  3. PREDNISOLON [Suspect]
     Active Substance: PREDNISOLONE
     Indication: ASSISTED FERTILISATION
     Dosage: 5 MG, 3X/DAY (0. - 32.3. GESTATIONAL WEEK)
     Route: 064
     Dates: start: 20130906, end: 20140421
  4. BUSCOPAN [Concomitant]
     Active Substance: BUTYLSCOPOLAMINE BROMIDE
     Indication: KIDNEY INFECTION
     Dosage: UNK (28. - 29. GESTATIONAL WEEK)
     Route: 064
     Dates: start: 2014, end: 2014
  5. CEFURAX [Concomitant]
     Active Substance: CEFUROXIME AXETIL
     Indication: CYSTITIS
  6. L-THYROXIN [Concomitant]
     Active Substance: LEVOTHYROXINE SODIUM
     Indication: AUTOIMMUNE THYROIDITIS
     Dosage: 175 ?G, 1X/DAY 0. - 32.3. GESTATIONAL WEEK
     Route: 064
     Dates: start: 20130906, end: 20140421
  7. ASS 100 [Concomitant]
     Active Substance: ASPIRIN
     Indication: ASSISTED FERTILISATION
     Dosage: 100 MG, 1X/DAY, 0. - 32.3. GESTATIONAL WEEK
     Route: 064
     Dates: start: 20130906, end: 20140421
  8. BUSCOPAN [Concomitant]
     Active Substance: BUTYLSCOPOLAMINE BROMIDE
     Indication: CYSTITIS
  9. CEFURAX [Concomitant]
     Active Substance: CEFUROXIME AXETIL
     Indication: KIDNEY INFECTION
     Dosage: UNK (28. - 29. GESTATIONAL WEEK)
     Route: 064
     Dates: start: 2014, end: 2014
  10. FRAGMIN [Concomitant]
     Active Substance: DALTEPARIN SODIUM
     Indication: ASSISTED FERTILISATION
     Dosage: 5000 IU, 1X/DAY, 0. - 24. GESTATIONAL WEEK
     Route: 064
     Dates: start: 20130906, end: 2014
  11. FOLIC ACID ^RATIOPHARM^ [Concomitant]
     Indication: PROPHYLAXIS OF NEURAL TUBE DEFECT
     Dosage: 5 MG, 1X/DAY, 0. - 32.3. GESTATIONAL WEEK
     Route: 064
     Dates: start: 20130906, end: 20140421
  12. UTROGEST [Concomitant]
     Active Substance: PROGESTERONE
     Indication: ASSISTED FERTILISATION
     Dosage: UNK (0. - 12. GESTATIONAL WEEK)
     Route: 064
     Dates: start: 20130906, end: 201312
  13. NOVORAPID [Concomitant]
     Active Substance: INSULIN ASPART
     Indication: GESTATIONAL DIABETES
     Dosage: UNK (28. - 32.3. GESTATIONAL WEEK)
     Route: 064
     Dates: start: 2014, end: 20140421

REACTIONS (4)
  - Truncus arteriosus persistent [Fatal]
  - Maternal exposure during pregnancy [Fatal]
  - Pulmonary artery stenosis [Fatal]
  - Premature baby [Unknown]
